FAERS Safety Report 8075620-6 (Version None)
Quarter: 2012Q1

REPORT INFORMATION
  Report Type: 
  Country: None (occurrence: None)
  Receive Date: 20120127
  Receipt Date: 20110224
  Transmission Date: 20120608
  Serious: No
  Sender: FDA-Public Use
  Company Number: US-GLAXOSMITHKLINE-A0915295A

PATIENT
  Age: 69 Year
  Sex: Female

DRUGS (3)
  1. UNKNOWN MEDICATION [Concomitant]
     Indication: HERPES ZOSTER
  2. MEPRON [Suspect]
     Indication: PROPHYLAXIS
     Dosage: 1TSP PER DAY
     Route: 048
     Dates: start: 20110223, end: 20110224
  3. UNKNOWN MEDICATION [Concomitant]
     Indication: GLAUCOMA

REACTIONS (5)
  - PRURITUS [None]
  - BURNING SENSATION [None]
  - RASH GENERALISED [None]
  - EYE IRRITATION [None]
  - VISION BLURRED [None]
